FAERS Safety Report 7699468-7 (Version None)
Quarter: 2011Q3

REPORT INFORMATION
  Report Type: 
  Country: None (occurrence: None)
  Receive Date: 20110820
  Receipt Date: 20101105
  Transmission Date: 20111222
  Serious: No
  Sender: FDA-Public Use
  Company Number: US-ALLERGAN-1014351US

PATIENT
  Sex: Female

DRUGS (2)
  1. SANCTURA XR [Suspect]
     Indication: POLLAKIURIA
     Dosage: 60 MG, SINGLE
     Route: 048
     Dates: start: 20101105
  2. ELMIRON [Concomitant]
     Indication: CYSTITIS INTERSTITIAL

REACTIONS (3)
  - DRY THROAT [None]
  - NASAL DRYNESS [None]
  - POLLAKIURIA [None]
